FAERS Safety Report 13149689 (Version 1)
Quarter: 2017Q1

REPORT INFORMATION
  Report Type: Spontaneous
  Country: TR (occurrence: TR)
  Receive Date: 20170125
  Receipt Date: 20170125
  Transmission Date: 20170428
  Serious: Yes (Other)
  Sender: FDA-Public Use
  Company Number: TR-ASTRAZENECA-2017SE04717

PATIENT
  Age: 50 Year
  Sex: Female

DRUGS (5)
  1. ANTIHYPERTENSIVE MEDICATION [Concomitant]
  2. BYETTA [Suspect]
     Active Substance: EXENATIDE
     Route: 065
  3. METFORMIN [Concomitant]
     Active Substance: METFORMIN HYDROCHLORIDE
  4. BASAL INSULIN [Concomitant]
  5. FORZIGA [Suspect]
     Active Substance: DAPAGLIFLOZIN
     Route: 048

REACTIONS (1)
  - Acute kidney injury [Unknown]
